FAERS Safety Report 10170840 (Version 2)
Quarter: 2014Q2

REPORT INFORMATION
  Report Type: Spontaneous
  Country: DE (occurrence: DE)
  Receive Date: 20140514
  Receipt Date: 20140630
  Transmission Date: 20141212
  Serious: Yes (Other)
  Sender: FDA-Public Use
  Company Number: DE-JNJFOC-20140507183

PATIENT
  Age: 85 Year
  Sex: Male
  Weight: 67 kg

DRUGS (7)
  1. XARELTO [Suspect]
     Indication: CEREBROVASCULAR ACCIDENT PROPHYLAXIS
     Route: 048
     Dates: start: 20140320, end: 20140508
  2. XARELTO [Suspect]
     Indication: ATRIAL FIBRILLATION
     Route: 048
     Dates: start: 20140320, end: 20140508
  3. DIGIMERCK [Concomitant]
     Route: 065
     Dates: start: 20140301
  4. METOPROLOL [Concomitant]
     Route: 065
     Dates: start: 20140115
  5. LASIX [Concomitant]
     Route: 065
     Dates: start: 20140301
  6. LOSARTAN [Concomitant]
     Route: 065
  7. MOXONIDIN [Concomitant]
     Route: 065
     Dates: start: 2009

REACTIONS (3)
  - Visual impairment [Recovering/Resolving]
  - Malaise [Recovering/Resolving]
  - Dysgeusia [Recovering/Resolving]
